FAERS Safety Report 23129325 (Version 1)
Quarter: 2023Q4

REPORT INFORMATION
  Report Type: Spontaneous
  Country: AT (occurrence: AT)
  Receive Date: 20231031
  Receipt Date: 20231031
  Transmission Date: 20240110
  Serious: Yes (Other)
  Sender: FDA-Public Use
  Company Number: None

PATIENT
  Age: 88 Year
  Sex: Male

DRUGS (1)
  1. KEYTRUDA [Suspect]
     Active Substance: PEMBROLIZUMAB
     Indication: Chemotherapy
     Dosage: UNK
     Route: 042
     Dates: start: 202307

REACTIONS (1)
  - Drug eruption [Unknown]

NARRATIVE: CASE EVENT DATE: 20230701
